FAERS Safety Report 8275968-6 (Version None)
Quarter: 2012Q2

REPORT INFORMATION
  Report Type: 
  Country: None (occurrence: None)
  Receive Date: 20120412
  Receipt Date: 20120409
  Transmission Date: 20120825
  Serious: No
  Sender: FDA-Public Use
  Company Number: US-PFIZER INC-2012089104

PATIENT
  Sex: Female
  Weight: 63.492 kg

DRUGS (2)
  1. PREMARIN [Suspect]
     Indication: HOT FLUSH
     Dosage: 0.625 MG, DAILY
     Route: 048
     Dates: start: 19900101, end: 20070101
  2. VITAMIN D [Concomitant]
     Dosage: UNK,DAILY

REACTIONS (2)
  - HOT FLUSH [None]
  - ATROPHIC VULVOVAGINITIS [None]
